FAERS Safety Report 5039230-7 (Version None)
Quarter: 2006Q2

REPORT INFORMATION
  Report Type: 
  Country: None (occurrence: None)
  Receive Date: 20060629
  Receipt Date: 20060525
  Transmission Date: 20061013
  Serious: Yes (Other)
  Sender: FDA-Public Use
  Company Number: PHEH2006US06899

PATIENT
  Age: 7 Year
  Sex: Male

DRUGS (1)
  1. TRILEPTAL [Suspect]
     Route: 048
     Dates: start: 20060101

REACTIONS (8)
  - ABDOMINAL PAIN UPPER [None]
  - HALLUCINATION [None]
  - HEADACHE [None]
  - HEART RATE INCREASED [None]
  - INITIAL INSOMNIA [None]
  - NAUSEA [None]
  - PSYCHOMOTOR HYPERACTIVITY [None]
  - VOMITING [None]
